FAERS Safety Report 6918982-2 (Version None)
Quarter: 2010Q3

REPORT INFORMATION
  Report Type: 
  Country: None (occurrence: None)
  Receive Date: 20100726
  Receipt Date: 20090710
  Transmission Date: 20110219
  Serious: No
  Sender: FDA-Public Use
  Company Number: 2009-00383

PATIENT
  Sex: Female
  Weight: 58.9676 kg

DRUGS (3)
  1. ZICAM COLD REMEDY GEL SWABS [Suspect]
     Dosage: 5-6 DOSES
     Dates: start: 20080401
  2. WELLBUTRIN [Concomitant]
  3. SERTALINE [Concomitant]

REACTIONS (1)
  - ANOSMIA [None]
